FAERS Safety Report 24205709 (Version 2)
Quarter: 2024Q3

REPORT INFORMATION
  Report Type: Spontaneous
  Country: US (occurrence: US)
  Receive Date: 20240813
  Receipt Date: 20240829
  Transmission Date: 20241017
  Serious: Yes (Other)
  Sender: CSL BEHRING
  Company Number: US-BEH-2024176750

PATIENT

DRUGS (2)
  1. PRIVIGEN [Suspect]
     Active Substance: HUMAN IMMUNOGLOBULIN G
     Dosage: 100 G, QOW
     Route: 065
     Dates: start: 2020
  2. HYDROXYCHLOROQUINE [Concomitant]
     Active Substance: HYDROXYCHLOROQUINE

REACTIONS (37)
  - Infection [Unknown]
  - Urinary retention [Unknown]
  - Urinary retention [Unknown]
  - Urinary retention [Unknown]
  - Suspected counterfeit product [Unknown]
  - Fatigue [Unknown]
  - Gastrointestinal motility disorder [Unknown]
  - Pain [Unknown]
  - Flushing [Unknown]
  - Restless legs syndrome [Unknown]
  - Swelling [Unknown]
  - Weight increased [Unknown]
  - Arthralgia [Unknown]
  - Nasal congestion [Unknown]
  - Cough [Unknown]
  - Limb discomfort [Unknown]
  - Swelling [Unknown]
  - Constipation [Unknown]
  - Abdominal pain [Unknown]
  - Gait disturbance [Unknown]
  - Temperature intolerance [Unknown]
  - Feeling hot [Unknown]
  - Burning sensation [Unknown]
  - Fatigue [Unknown]
  - Weight increased [Unknown]
  - Inflammation [Unknown]
  - Headache [Unknown]
  - Nasal congestion [Unknown]
  - Swelling [Unknown]
  - Feeling abnormal [Unknown]
  - Headache [Unknown]
  - Irritability [Unknown]
  - Abdominal pain upper [Unknown]
  - Functional gastrointestinal disorder [Unknown]
  - Weight increased [Unknown]
  - Arthralgia [Unknown]
  - Gastrointestinal motility disorder [Unknown]

NARRATIVE: CASE EVENT DATE: 20230713
